FAERS Safety Report 4561324-0 (Version None)
Quarter: 2005Q1

REPORT INFORMATION
  Report Type: 
  Country: None (occurrence: None)
  Receive Date: 20050126
  Receipt Date: 20050124
  Transmission Date: 20050727
  Serious: Yes (Death)
  Sender: FDA-Public Use
  Company Number: DE-BRISTOL-MYERS SQUIBB COMPANY-12836375

PATIENT
  Age: 45 Year
  Sex: Female
  Weight: 71 kg

DRUGS (5)
  1. TAXOL [Suspect]
     Indication: OVARIAN CANCER
     Dosage: C1: AUG-2004; C2: 30-AUG-2004; C3: 05-SEP-2004
     Route: 042
     Dates: start: 20040801, end: 20040905
  2. DEXAMETHASONE [Concomitant]
     Indication: PREMEDICATION
     Route: 042
     Dates: start: 20040801, end: 20040905
  3. TAVEGIL [Concomitant]
     Indication: PREMEDICATION
     Route: 042
     Dates: start: 20040801, end: 20040905
  4. KEVATRIL [Concomitant]
     Indication: PREMEDICATION
     Route: 042
     Dates: start: 20040801, end: 20040905
  5. RANITIDINE [Concomitant]
     Indication: PREMEDICATION
     Route: 042
     Dates: start: 20040801, end: 20040905

REACTIONS (1)
  - PULMONARY EMBOLISM [None]
